FAERS Safety Report 17319568 (Version 2)
Quarter: 2020Q1

REPORT INFORMATION
  Report Type: Spontaneous
  Country: DE (occurrence: DE)
  Receive Date: 20200125
  Receipt Date: 20200213
  Transmission Date: 20200409
  Serious: Yes (Hospitalization)
  Sender: FDA-Public Use
  Company Number: DE-DRREDDYS-GER/GER/20/0118728

PATIENT
  Age: 47 Year
  Sex: Male
  Weight: 80 kg

DRUGS (5)
  1. MIRTAZAPIN ABZ 15MG [Suspect]
     Active Substance: MIRTAZAPINE
     Indication: PRODUCT USED FOR UNKNOWN INDICATION
     Route: 048
  2. VENLAFAXIN BETA 37,5 MG TABLETTEN [Suspect]
     Active Substance: VENLAFAXINE HYDROCHLORIDE
     Route: 048
     Dates: start: 20200114, end: 20200114
  3. VENLAFAXIN BETA 37,5 MG TABLETTEN [Suspect]
     Active Substance: VENLAFAXINE HYDROCHLORIDE
     Indication: PRODUCT USED FOR UNKNOWN INDICATION
     Route: 048
  4. MIRTAZAPIN ABZ 15MG [Suspect]
     Active Substance: MIRTAZAPINE
     Dosage: 150 TABLETS, ORALLY, PROBABLE EXPOSURE
     Route: 048
     Dates: start: 20200114, end: 20200114
  5. ALCOHOL. [Suspect]
     Active Substance: ALCOHOL
     Indication: PRODUCT USED FOR UNKNOWN INDICATION
     Dosage: UNKNOWN QUANTITY
     Route: 048
     Dates: start: 20200114

REACTIONS (14)
  - Sinus bradycardia [Unknown]
  - Respiratory failure [Unknown]
  - Intentional overdose [Unknown]
  - Somnolence [Unknown]
  - Respiratory acidosis [Unknown]
  - Suicide attempt [Unknown]
  - Electrocardiogram QRS complex prolonged [Unknown]
  - Sopor [Unknown]
  - Blood creatine phosphokinase increased [Unknown]
  - Disorientation [Unknown]
  - Hypotension [Unknown]
  - Gastrointestinal sounds abnormal [Unknown]
  - Respiratory depression [Unknown]
  - Disturbance in attention [Unknown]

NARRATIVE: CASE EVENT DATE: 20200114
